FAERS Safety Report 9477017 (Version 1)
Quarter: 2013Q3

REPORT INFORMATION
  Report Type: Spontaneous
  Country: US (occurrence: US)
  Receive Date: 20130826
  Receipt Date: 20130826
  Transmission Date: 20140515
  Serious: No
  Sender: FDA-Public Use
  Company Number: US-BAYER-2013-103004

PATIENT
  Age: 64 Year
  Sex: Female
  Weight: 69.39 kg

DRUGS (8)
  1. ALEVE CAPLET [Suspect]
     Dosage: 2 DF, ONCE
     Route: 048
     Dates: start: 20130818
  2. BENADRYL [Concomitant]
  3. METFORMIN [Concomitant]
     Dosage: UNK
  4. GLIMEPIRIDE [Concomitant]
     Dosage: UNK
  5. PRAVASTATIN [Concomitant]
     Dosage: UNK
  6. VALSARTAN [Concomitant]
     Dosage: UNK
  7. VITAFUCIN COMP. [Concomitant]
  8. JANUMET [Concomitant]

REACTIONS (1)
  - Urticaria [Not Recovered/Not Resolved]
